FAERS Safety Report 8447791-0 (Version None)
Quarter: 2012Q2

REPORT INFORMATION
  Report Type: 
  Country: None (occurrence: None)
  Receive Date: 20120619
  Receipt Date: 20120606
  Transmission Date: 20120825
  Serious: Yes (Life-Threatening, Hospitalization)
  Sender: FDA-Public Use
  Company Number: ES-COVIDIEN/TYCO HEALTHCARE/MALLINCKRODT-T201202514

PATIENT
  Age: 44 Year
  Sex: Female

DRUGS (1)
  1. SODIUM CHLORIDE [Suspect]

REACTIONS (7)
  - HYPOCALCAEMIA [None]
  - RESPIRATORY ACIDOSIS [None]
  - GENERALISED OEDEMA [None]
  - FLUID OVERLOAD [None]
  - PULMONARY OEDEMA [None]
  - DILUTIONAL COAGULOPATHY [None]
  - HAEMOGLOBIN DECREASED [None]
